FAERS Safety Report 26094472 (Version 2)
Quarter: 2025Q4

REPORT INFORMATION
  Report Type: Spontaneous
  Country: EU (occurrence: EU)
  Receive Date: 20251126
  Receipt Date: 20251203
  Transmission Date: 20260118
  Serious: Yes (Other)
  Sender: PFIZER
  Company Number: EU-ROCHE-10000435075

PATIENT
  Age: 24 Year
  Sex: Male

DRUGS (12)
  1. RITUXIMAB [Suspect]
     Active Substance: RITUXIMAB
     Indication: Mantle cell lymphoma
     Dosage: R-CHOP COMBINED WITH IBRUTINIB (DAYS 1-19, CYCLE DURATION 21 DAYS) IN CYCLES 1, 3, AND 5
     Dates: start: 202501
  2. RITUXIMAB [Suspect]
     Active Substance: RITUXIMAB
     Dosage: IN CYCLES 2, 4, AND 6, TREATMENT WAS ADMINISTERED WITH R-DHAP WITHOUT IBRUTINIB
  3. RITUXIMAB [Suspect]
     Active Substance: RITUXIMAB
     Dosage: EVERY 8 WEEKS (PLANNED UNTIL MAY2028) (MAINTENANCE THERAPY)
     Route: 042
  4. CISPLATIN [Concomitant]
     Active Substance: CISPLATIN
     Indication: Mantle cell lymphoma
     Dosage: IN CYCLES 2, 4, AND 6, TREATMENT WAS ADMINISTERED WITH R-DHAP WITHOUT IBRUTINIB
  5. CYCLOPHOSPHAMIDE [Concomitant]
     Active Substance: CYCLOPHOSPHAMIDE
     Indication: Mantle cell lymphoma
     Dosage: R-CHOP COMBINED WITH IBRUTINIB (DAYS 1-19, CYCLE DURATION 21 DAYS) IN CYCLES 1, 3, AND 5
     Dates: start: 202501
  6. CYTARABINE [Concomitant]
     Active Substance: CYTARABINE
     Indication: Mantle cell lymphoma
     Dosage: IN CYCLES 2, 4, AND 6, TREATMENT WAS ADMINISTERED WITH R-DHAP WITHOUT IBRUTINIB
  7. DEXAMETHASONE [Concomitant]
     Active Substance: DEXAMETHASONE
     Indication: Mantle cell lymphoma
     Dosage: IN CYCLES 2, 4, AND 6, TREATMENT WAS ADMINISTERED WITH R-DHAP WITHOUT IBRUTINIB
  8. DOXORUBICIN [Concomitant]
     Active Substance: DOXORUBICIN
     Indication: Mantle cell lymphoma
     Dosage: R-CHOP COMBINED WITH IBRUTINIB (DAYS 1-19, CYCLE DURATION 21 DAYS) IN CYCLES 1, 3, AND 5
     Dates: start: 202501
  9. IBRUTINIB [Concomitant]
     Active Substance: IBRUTINIB
     Indication: Mantle cell lymphoma
     Dosage: R-CHOP COMBINED WITH IBRUTINIB (DAYS 1-19, CYCLE DURATION 21 DAYS) IN CYCLES 1, 3, AND 5
     Dates: start: 202501
  10. IBRUTINIB [Concomitant]
     Active Substance: IBRUTINIB
     Dosage: DAILY FOR 24 MONTHS (PLANNED UNTIL MAY2027) (MAINTENANCE)
  11. PREDNISONE [Concomitant]
     Active Substance: PREDNISONE
     Indication: Mantle cell lymphoma
     Dosage: R-CHOP COMBINED WITH IBRUTINIB (DAYS 1-19, CYCLE DURATION 21 DAYS) IN CYCLES 1, 3, AND 5
     Dates: start: 202501
  12. VINCRISTINE [Concomitant]
     Active Substance: VINCRISTINE
     Indication: Mantle cell lymphoma
     Dosage: R-CHOP COMBINED WITH IBRUTINIB (DAYS 1-19, CYCLE DURATION 21 DAYS) IN CYCLES 1, 3, AND 5
     Dates: start: 202501

REACTIONS (1)
  - IgG deficiency [Unknown]

NARRATIVE: CASE EVENT DATE: 20250101
